FAERS Safety Report 20841998 (Version 1)
Quarter: 2022Q2

REPORT INFORMATION
  Report Type: Spontaneous
  Country: US (occurrence: US)
  Receive Date: 20220518
  Receipt Date: 20220518
  Transmission Date: 20220721
  Serious: Yes (Other)
  Sender: FDA-Public Use
  Company Number: US-NOVOPROD-918267

PATIENT
  Sex: Female

DRUGS (1)
  1. WEGOVY [Suspect]
     Active Substance: SEMAGLUTIDE
     Indication: Weight decreased
     Dosage: 2.4 MG, QW
     Route: 058

REACTIONS (4)
  - Liver disorder [Not Recovered/Not Resolved]
  - Malaise [Unknown]
  - Laboratory test abnormal [Not Recovered/Not Resolved]
  - Off label use [Unknown]
